FAERS Safety Report 6051568-3 (Version None)
Quarter: 2009Q1

REPORT INFORMATION
  Report Type: 
  Country: None (occurrence: None)
  Receive Date: 20090126
  Receipt Date: 20090121
  Transmission Date: 20090719
  Serious: Yes (Hospitalization)
  Sender: FDA-Public Use
  Company Number: B0554725A

PATIENT
  Age: 70 Year
  Sex: Male

DRUGS (15)
  1. CARVEDILOL [Suspect]
     Indication: HYPERTENSION
     Dosage: 12.5MG PER DAY
     Route: 048
  2. NEORECORMON [Suspect]
     Route: 058
  3. TOREM [Suspect]
     Indication: HYPERTENSION
     Dosage: 20MG THREE TIMES PER DAY
     Route: 048
  4. MOXONIDINE [Suspect]
     Indication: HYPERTENSION
     Dosage: .2MG THREE TIMES PER DAY
     Route: 048
  5. SODIUM CITRATE + CALCIUM CITRATE + CITRIC ACID [Suspect]
     Indication: ACIDOSIS
     Dosage: 2.5G PER DAY
     Route: 048
  6. ALLOPURINOL [Suspect]
     Dosage: 50MG PER DAY
     Route: 048
  7. ASPIRIN [Suspect]
     Indication: PROPHYLAXIS
     Dosage: 100MG PER DAY
     Route: 048
     Dates: start: 20000101
  8. DIGITOXIN [Suspect]
     Dosage: .07MG PER DAY
     Route: 048
     Dates: start: 20080625, end: 20080720
  9. DIOVAN [Suspect]
     Dosage: 160MG PER DAY
     Route: 048
  10. EBRANTIL [Suspect]
     Indication: HYPERTENSION
     Dosage: 60MG TWICE PER DAY
     Route: 048
  11. ALFACALCIDOL [Suspect]
     Indication: HYPERPARATHYROIDISM
     Dosage: .25UG PER DAY
     Route: 048
     Dates: start: 20080520
  12. FLUVASTATIN [Suspect]
     Dosage: 20MG PER DAY
     Route: 048
  13. PANTOZOL [Suspect]
     Dosage: 40MG TWICE PER DAY
     Route: 048
  14. PLAVIX [Suspect]
     Indication: PROPHYLAXIS
     Dosage: 75MG PER DAY
     Route: 048
     Dates: start: 20080401, end: 20080720
  15. XIPAMIDE [Suspect]
     Indication: HYPERTENSION
     Dosage: 20MG PER DAY
     Route: 048

REACTIONS (9)
  - BLOOD CREATININE INCREASED [None]
  - BLOOD IRON DECREASED [None]
  - BLOOD UREA INCREASED [None]
  - GAMMA-GLUTAMYLTRANSFERASE INCREASED [None]
  - GENERAL PHYSICAL CONDITION [None]
  - HAEMATOCRIT DECREASED [None]
  - HAEMOGLOBIN DECREASED [None]
  - INTERNATIONAL NORMALISED RATIO INCREASED [None]
  - PROTHROMBIN TIME ABNORMAL [None]
